FAERS Safety Report 8270513-3 (Version None)
Quarter: 2012Q2

REPORT INFORMATION
  Report Type: 
  Country: None (occurrence: None)
  Receive Date: 20120410
  Receipt Date: 20120402
  Transmission Date: 20120825
  Serious: Yes (Other)
  Sender: FDA-Public Use
  Company Number: JP-ASTELLAS-2012JP002863

PATIENT
  Age: 61 Year
  Sex: Male

DRUGS (9)
  1. METHOTREXATE [Concomitant]
     Indication: PROPHYLAXIS AGAINST GRAFT VERSUS HOST DISEASE
     Dosage: 15 MG/M2, UNKNOWN/D
     Route: 065
  2. CYTARABINE [Concomitant]
     Dosage: 200 MG/M2, BID
     Route: 065
  3. MORPHINE [Concomitant]
     Route: 065
  4. MORPHINE [Concomitant]
     Route: 065
  5. MELPHALAN HYDROCHLORIDE [Concomitant]
     Dosage: 140 MG/M2, UNKNOWN/D
     Route: 065
  6. ETOPOSIDE [Concomitant]
     Dosage: 200 MG/M2, UNKNOWN/D
     Route: 065
  7. METHOTREXATE [Concomitant]
     Dosage: 10 MG/M2, UNKNOWN/D
     Route: 065
  8. PROGRAF [Suspect]
     Indication: PROPHYLAXIS AGAINST GRAFT VERSUS HOST DISEASE
     Dosage: 0.03 MG/KG, CONTINUOUS
     Route: 041
  9. FLUDARABINE PHOSPHATE [Concomitant]
     Dosage: 25 MG/M2, UNKNOWN/D
     Route: 065

REACTIONS (6)
  - NEUROTOXICITY [None]
  - DRUG INEFFECTIVE [None]
  - CONVULSION [None]
  - SOMNOLENCE [None]
  - ENCEPHALOPATHY [None]
  - ACUTE GRAFT VERSUS HOST DISEASE [None]
